FAERS Safety Report 8289386-8 (Version None)
Quarter: 2012Q2

REPORT INFORMATION
  Report Type: 
  Country: None (occurrence: None)
  Receive Date: 20120417
  Receipt Date: 20120412
  Transmission Date: 20120825
  Serious: Yes (Hospitalization, Other)
  Sender: FDA-Public Use
  Company Number: US-TEVA-333000USA

PATIENT
  Sex: Female

DRUGS (1)
  1. LEVOFLOXACIN (LEVAQUIN) [Suspect]
     Indication: WOUND INFECTION
     Route: 048
     Dates: start: 20110815, end: 20110901

REACTIONS (9)
  - PALPITATIONS [None]
  - OPEN WOUND [None]
  - ELECTROCARDIOGRAM QT SHORTENED [None]
  - VISUAL IMPAIRMENT [None]
  - TENDONITIS [None]
  - ABSCESS [None]
  - NEUROPATHY PERIPHERAL [None]
  - VASCULAR INSUFFICIENCY [None]
  - CELLULITIS [None]
